FAERS Safety Report 7889230-4 (Version None)
Quarter: 2011Q4

REPORT INFORMATION
  Report Type: 
  Country: None (occurrence: None)
  Receive Date: 20111101
  Receipt Date: 20111018
  Transmission Date: 20120403
  Serious: Yes (Other)
  Sender: FDA-Public Use
  Company Number: 2011MA015284

PATIENT
  Age: 27 Year
  Sex: Female

DRUGS (3)
  1. CITALOPRAM HYDROBROMIDE [Suspect]
     Indication: PSYCHOTIC DISORDER
     Dosage: 40 MG
  2. RISPERIDONE [Suspect]
     Indication: PSYCHOTIC DISORDER
     Dosage: 6 MG
  3. DIAZEPAM [Suspect]
     Indication: PSYCHOTIC DISORDER
     Dosage: PRN

REACTIONS (14)
  - ANHEDONIA [None]
  - HALLUCINATION, AUDITORY [None]
  - MOOD ALTERED [None]
  - ARTHRALGIA [None]
  - MOBILITY DECREASED [None]
  - SOCIAL AVOIDANT BEHAVIOUR [None]
  - DECREASED INTEREST [None]
  - SUICIDAL IDEATION [None]
  - MATERNAL EXPOSURE DURING PREGNANCY [None]
  - PELVIC PAIN [None]
  - NEGATIVE THOUGHTS [None]
  - PSYCHOTIC DISORDER [None]
  - DEPRESSIVE SYMPTOM [None]
  - FATIGUE [None]
